FAERS Safety Report 7416903-X (Version None)
Quarter: 2011Q2

REPORT INFORMATION
  Report Type: 
  Country: None (occurrence: None)
  Receive Date: 20110406
  Receipt Date: 20110321
  Transmission Date: 20111010
  Serious: Yes (Hospitalization, Other)
  Sender: FDA-Public Use
  Company Number: 2011P1004504

PATIENT
  Age: 74 Year
  Sex: Female

DRUGS (16)
  1. ENOXAPARIN [Suspect]
     Indication: THROMBOSIS PROPHYLAXIS
     Dosage: ;QD;SC
     Route: 058
     Dates: start: 20101209, end: 20101215
  2. ASPIRIN [Concomitant]
  3. FOSALAN (ALENDRONATE (SODIUM) [Concomitant]
  4. LOSEC (OMEPRALOLE) [Concomitant]
  5. AEROVENT (IPRATROPIUM BROMIDE) [Concomitant]
  6. FLUTICASONE PROPIONATE [Concomitant]
  7. DERALIN (PROPRANOLOL HCL) [Concomitant]
  8. APIXABAN [Suspect]
     Indication: THROMBOSIS PROPHYLAXIS
     Dosage: 2 TABTETS; QD; PO
     Route: 048
     Dates: start: 20101209, end: 20101223
  9. APIXABAN [Suspect]
     Indication: THROMBOSIS PROPHYLAXIS
     Dosage: 2 TABTETS; QD; PO
     Route: 048
     Dates: start: 20101224, end: 20110106
  10. AMLODIPINE [Concomitant]
  11. PREDNISONE [Concomitant]
  12. ROSUVASTATIN [Suspect]
  13. ETODOLAC [Suspect]
     Dosage: ;PO
     Route: 048
  14. PLACEBO [Suspect]
     Indication: THROMBOSIS PROPHYLAXIS
  15. FUROSEMIDE [Concomitant]
  16. SINGLULAIR (MONTELUKAST) [Concomitant]

REACTIONS (11)
  - CHOLELITHIASIS [None]
  - URINARY TRACT INFECTION BACTERIAL [None]
  - IMMOBILE [None]
  - CELLULITIS [None]
  - ASPARTATE AMINOTRANSFERASE INCREASED [None]
  - GAMMA-GLUTAMYLTRANSFERASE INCREASED [None]
  - PERIPHERAL EMBOLISM [None]
  - KLEBSIELLA TEST POSITIVE [None]
  - ARTERIOSCLEROSIS [None]
  - CHOLECYSTITIS [None]
  - ALANINE AMINOTRANSFERASE INCREASED [None]
